FAERS Safety Report 4349479-4 (Version None)
Quarter: 2004Q2

REPORT INFORMATION
  Report Type: 
  Country: None (occurrence: None)
  Receive Date: 20040426
  Receipt Date: 20040415
  Transmission Date: 20050107
  Serious: Yes (Hospitalization)
  Sender: FDA-Public Use
  Company Number: 02P-229-0196697-00

PATIENT
  Age: 19 Year
  Sex: Female

DRUGS (2)
  1. BIAXIN [Suspect]
     Indication: ACUTE TONSILLITIS
     Dosage: INTRAVENOUS
     Route: 042
     Dates: start: 20020617, end: 20020618
  2. BIAXIN [Suspect]
     Indication: TONSILLITIS
     Dosage: PER ORAL
     Route: 048
     Dates: start: 20020618, end: 20020619

REACTIONS (12)
  - AGITATION [None]
  - CONFUSIONAL STATE [None]
  - DEPERSONALISATION [None]
  - DEREALISATION [None]
  - DISORIENTATION [None]
  - DYSTONIA [None]
  - ENCEPHALITIS [None]
  - HALLUCINATION, AUDITORY [None]
  - HALLUCINATION, VISUAL [None]
  - INAPPROPRIATE AFFECT [None]
  - PARANOIA [None]
  - PSYCHOTIC DISORDER [None]
